FAERS Safety Report 25163289 (Version 3)
Quarter: 2025Q2

REPORT INFORMATION
  Report Type: Spontaneous
  Country: US (occurrence: US)
  Receive Date: 20250404
  Receipt Date: 20250429
  Transmission Date: 20250717
  Serious: Yes (Other)
  Sender: RIGEL PHARMACEUTICALS
  Company Number: US-RIGEL Pharmaceuticals, INC-20250400013

PATIENT
  Age: 72 Year
  Sex: Male
  Weight: 73.936 kg

DRUGS (2)
  1. GAVRETO [Suspect]
     Active Substance: PRALSETINIB
     Indication: Lung neoplasm malignant
     Dosage: 100 MG, QD
     Route: 048
     Dates: start: 20240627, end: 20250315
  2. GAVRETO [Suspect]
     Active Substance: PRALSETINIB
     Dosage: 100 MG, QD
     Route: 048
     Dates: start: 20250416

REACTIONS (4)
  - Diverticulitis [Recovering/Resolving]
  - Cushingoid [Unknown]
  - Product prescribing issue [Unknown]
  - Aspiration pleural cavity [Recovered/Resolved]

NARRATIVE: CASE EVENT DATE: 20240627
